FAERS Safety Report 9475870 (Version 1)
Quarter: 2013Q3

REPORT INFORMATION
  Report Type: Spontaneous
  Country: US (occurrence: US)
  Receive Date: 20130826
  Receipt Date: 20130826
  Transmission Date: 20140515
  Serious: Yes (Other)
  Sender: FDA-Public Use
  Company Number: US-BIOGENIDEC-2013BI077483

PATIENT
  Sex: Female

DRUGS (3)
  1. AVONEX [Suspect]
     Indication: MULTIPLE SCLEROSIS
     Route: 030
  2. TYSABRI [Concomitant]
     Indication: MULTIPLE SCLEROSIS
     Route: 042
     Dates: start: 20091209
  3. GILENYA [Concomitant]

REACTIONS (4)
  - Hysterectomy [Recovered/Resolved]
  - Abdominal pain [Unknown]
  - Back pain [Unknown]
  - Pyrexia [Recovered/Resolved]
